FAERS Safety Report 9766415 (Version 1)
Quarter: 2013Q4

REPORT INFORMATION
  Report Type: Spontaneous
  Country: US (occurrence: None)
  Receive Date: 20131216
  Receipt Date: 20131216
  Transmission Date: 20140711
  Serious: Yes (Other)
  Sender: FDA-Public Use
  Company Number: None

PATIENT
  Age: 15 Month
  Sex: Male

DRUGS (3)
  1. ADVATE [Suspect]
     Indication: PROPHYLAXIS
     Dosage: 600 UNITS WEEKLY
     Route: 042
     Dates: start: 20120924, end: 20121212
  2. ADVATE [Suspect]
     Indication: FACTOR VIII DEFICIENCY
     Dosage: 600 UNITS WEEKLY
     Route: 042
     Dates: start: 20120924, end: 20121212
  3. ADVATE [Suspect]
     Indication: FACTOR VIII DEFICIENCY
     Dosage: 1140 UNITS DAILY IV
     Route: 042
     Dates: start: 20130805

REACTIONS (1)
  - Anti factor VIII antibody positive [None]
